FAERS Safety Report 5728638-X (Version None)
Quarter: 2008Q2

REPORT INFORMATION
  Report Type: 
  Country: None (occurrence: None)
  Receive Date: 20080506
  Receipt Date: 20080425
  Transmission Date: 20081010
  Serious: Yes (Hospitalization)
  Sender: FDA-Public Use
  Company Number: FR-JNJFOC-20080406553

PATIENT
  Sex: Male

DRUGS (5)
  1. DURAGESIC-100 [Suspect]
     Indication: BACK PAIN
     Route: 062
  2. ULTRACET [Suspect]
     Indication: BACK PAIN
     Dosage: 2 TO 4 TIMES A DAY
     Route: 048
  3. NOCTRAN [Suspect]
     Indication: DRUG USE FOR UNKNOWN INDICATION
     Route: 048
  4. RIVOTRIL [Suspect]
     Indication: DRUG USE FOR UNKNOWN INDICATION
     Route: 048
  5. LEXOMIL [Suspect]
     Indication: DRUG USE FOR UNKNOWN INDICATION
     Route: 048

REACTIONS (4)
  - CONFUSIONAL STATE [None]
  - DELIRIUM [None]
  - FAECALOMA [None]
  - SUBILEUS [None]
